FAERS Safety Report 13177470 (Version 1)
Quarter: 2017Q1

REPORT INFORMATION
  Report Type: Report from Study
  Country: US (occurrence: US)
  Receive Date: 20170201
  Receipt Date: 20170201
  Transmission Date: 20170428
  Serious: No
  Sender: FDA-Public Use
  Company Number: US-EXELIXIS-CABO-16006328

PATIENT
  Sex: Male

DRUGS (3)
  1. COMETRIQ [Suspect]
     Active Substance: CABOZANTINIB S-MALATE
     Dosage: 40 MG, QD
     Route: 048
     Dates: start: 201605, end: 20160516
  2. COMETRIQ [Suspect]
     Active Substance: CABOZANTINIB S-MALATE
     Indication: RENAL CANCER
     Dosage: 60 MG, QD
     Route: 048
     Dates: start: 20160419, end: 201605
  3. ENERGY GREENS [Concomitant]

REACTIONS (10)
  - Confusional state [Unknown]
  - Skin discolouration [Unknown]
  - Pain in extremity [Unknown]
  - Nausea [Unknown]
  - Off label use [Unknown]
  - Erythema [Unknown]
  - Burning sensation [Unknown]
  - Peripheral swelling [Unknown]
  - Paraesthesia [Unknown]
  - Hand-foot-and-mouth disease [Unknown]
